FAERS Safety Report 24671615 (Version 2)
Quarter: 2024Q4

REPORT INFORMATION
  Report Type: Spontaneous
  Country: FR (occurrence: FR)
  Receive Date: 20241127
  Receipt Date: 20241230
  Transmission Date: 20250114
  Serious: Yes (Death, Congenital Anomaly)
  Sender: JOHNSON AND JOHNSON
  Company Number: None

PATIENT
  Age: 32 Year
  Sex: Female

DRUGS (1)
  1. XARELTO [Suspect]
     Active Substance: RIVAROXABAN
     Indication: Pulmonary embolism
     Dosage: UNK
     Route: 048
     Dates: start: 20240424, end: 20240508

REACTIONS (3)
  - Spina bifida [Fatal]
  - Arnold-Chiari malformation [Fatal]
  - Foot deformity [Fatal]

NARRATIVE: CASE EVENT DATE: 20240916
